FAERS Safety Report 5286010-3 (Version None)
Quarter: 2007Q1

REPORT INFORMATION
  Report Type: 
  Country: None (occurrence: None)
  Receive Date: 20070329
  Receipt Date: 20070321
  Transmission Date: 20070707
  Serious: Yes (Death)
  Sender: FDA-Public Use
  Company Number: 2007SP005306

PATIENT
  Age: 47 Year
  Sex: Female

DRUGS (4)
  1. PEG-INTRON [Suspect]
     Indication: HEPATITIS C
     Dosage: 80 MCG; SC
     Route: 058
     Dates: start: 20070301
  2. RIBAVIRIN [Suspect]
     Indication: HEPATITIS C
     Dosage: PO
     Route: 048
     Dates: start: 20070301
  3. INSULIN [Concomitant]
  4. REBETRON [Concomitant]

REACTIONS (2)
  - DIALYSIS DEVICE COMPLICATION [None]
  - SHUNT THROMBOSIS [None]
